FAERS Safety Report 22005115 (Version 1)
Quarter: 2023Q1

REPORT INFORMATION
  Report Type: Spontaneous
  Country: DE (occurrence: None)
  Receive Date: 20230217
  Receipt Date: 20230217
  Transmission Date: 20230418
  Serious: Yes (Other)
  Sender: FDA-Public Use
  Company Number: 2023A034565

PATIENT
  Age: 67 Year
  Sex: Male
  Weight: 95 kg

DRUGS (3)
  1. DAPAGLIFLOZIN [Suspect]
     Active Substance: DAPAGLIFLOZIN
     Indication: Type 2 diabetes mellitus
     Dosage: THERAPY END DATE : NASK, UNIT DOSE : 10 MG, FREQUENCY TIME : 1 DAY
     Route: 048
     Dates: start: 20220110
  2. METFORMIN [Concomitant]
     Active Substance: METFORMIN HYDROCHLORIDE
     Indication: Diabetes mellitus
     Dosage: 2 GRAM DAILY
     Dates: start: 202101
  3. FLUTICASONE PROPIONATE\SALMETEROL XINAFOATE [Concomitant]
     Active Substance: FLUTICASONE PROPIONATE\SALMETEROL XINAFOATE
     Indication: Asthma
     Dosage: STRENGTH:50/250 MICROGRAM, DOSE:2X1 PUFF
     Route: 055
     Dates: start: 202112

REACTIONS (2)
  - Circulatory collapse [Recovered/Resolved]
  - Syncope [Recovered/Resolved]

NARRATIVE: CASE EVENT DATE: 20220129
